FAERS Safety Report 8850822 (Version 1)
Quarter: 2012Q4

REPORT INFORMATION
  Report Type: 
  Country: US (occurrence: US)
  Receive Date: 20121019
  Receipt Date: 20121019
  Transmission Date: 20130627
  Serious: No
  Sender: FDA-Public Use
  Company Number: US-PFIZER INC-2012258245

PATIENT
  Age: 13 Year
  Sex: Male
  Weight: 63.49 kg

DRUGS (2)
  1. AMOXICILLIN [Suspect]
  2. BENZYLPENICILLIN POTASSIUM [Suspect]
     Dosage: UNK

REACTIONS (1)
  - Drug hypersensitivity [Unknown]
